FAERS Safety Report 6857854-9 (Version None)
Quarter: 2010Q3

REPORT INFORMATION
  Report Type: 
  Country: None (occurrence: None)
  Receive Date: 20100719
  Receipt Date: 20080404
  Transmission Date: 20110219
  Serious: No
  Sender: FDA-Public Use
  Company Number: US-PFIZER INC-2008010479

PATIENT
  Sex: Female
  Weight: 49.9 kg

DRUGS (5)
  1. CHANTIX [Suspect]
     Indication: SMOKING CESSATION THERAPY
     Route: 048
     Dates: start: 20080112
  2. ESTRADERM [Concomitant]
  3. PRILOSEC [Concomitant]
  4. LEXAPRO [Concomitant]
  5. FENTANYL [Concomitant]
     Indication: ABDOMINAL PAIN

REACTIONS (3)
  - DRUG INEFFECTIVE [None]
  - NAUSEA [None]
  - VOMITING [None]
